FAERS Safety Report 24421999 (Version 1)
Quarter: 2024Q4

REPORT INFORMATION
  Report Type: Spontaneous
  Country: US (occurrence: US)
  Receive Date: 20241010
  Receipt Date: 20241010
  Transmission Date: 20250115
  Serious: Yes (Death, Hospitalization, Other)
  Sender: STERISCIENCE PTE
  Company Number: US-STERISCIENCE B.V.-2024-ST-001595

PATIENT
  Age: 38 Year
  Sex: Male

DRUGS (9)
  1. MEROPENEM [Suspect]
     Active Substance: MEROPENEM
     Indication: Nocardiosis
     Dosage: UNK
     Route: 065
  2. MEROPENEM [Suspect]
     Active Substance: MEROPENEM
     Indication: Disseminated aspergillosis
  3. VORICONAZOLE [Suspect]
     Active Substance: VORICONAZOLE
     Indication: Nocardiosis
     Dosage: UNK
     Route: 065
  4. VORICONAZOLE [Suspect]
     Active Substance: VORICONAZOLE
     Indication: Disseminated aspergillosis
  5. LINEZOLID [Suspect]
     Active Substance: LINEZOLID
     Indication: Nocardiosis
     Dosage: UNK
     Route: 065
  6. LINEZOLID [Suspect]
     Active Substance: LINEZOLID
     Indication: Disseminated aspergillosis
  7. ADALIMUMAB [Concomitant]
     Active Substance: ADALIMUMAB
     Indication: Rheumatoid arthritis
     Route: 065
  8. PREDNISONE [Concomitant]
     Active Substance: PREDNISONE
     Indication: Rheumatoid arthritis
     Dosage: UNK
     Route: 065
  9. METHOTREXATE [Concomitant]
     Active Substance: METHOTREXATE
     Indication: Rheumatoid arthritis
     Dosage: UNK
     Route: 065

REACTIONS (2)
  - Drug ineffective [Fatal]
  - Cerebral haemorrhage [Unknown]
